FAERS Safety Report 16957162 (Version 3)
Quarter: 2019Q4

REPORT INFORMATION
  Report Type: Report from Study
  Country: CN (occurrence: CN)
  Receive Date: 20191024
  Receipt Date: 20191106
  Transmission Date: 20200122
  Serious: Yes (Life-Threatening, Hospitalization, Other)
  Sender: FDA-Public Use
  Company Number: CN-ROCHE-2251170

PATIENT
  Age: 55 Year
  Sex: Female
  Weight: 54 kg

DRUGS (48)
  1. PLACEBO [Suspect]
     Active Substance: UNSPECIFIED INGREDIENT
     Indication: OVARIAN CANCER
     Dosage: DATE OF MOST RECENT DOSE OF ATEZOLIZUMAB/PLACEBO PRIOR TO AE AND SAE ONSET 05/NOV/2018
     Route: 042
     Dates: start: 20180921
  2. BEVACIZUMAB. [Suspect]
     Active Substance: BEVACIZUMAB
     Indication: OVARIAN CANCER
     Dosage: DATE OF MOST RECENT DOSE PRIOR TO ONSET OF THE EVENT: 20/JAN/2019 (760 MG)?ON 01/SEP/2019, MOST RECE
     Route: 042
     Dates: start: 20181015
  3. DEXAMETHASONE SODIUM PHOSPHATE. [Concomitant]
     Active Substance: DEXAMETHASONE SODIUM PHOSPHATE
     Dosage: PREVENT ALLERGY
     Route: 042
     Dates: start: 20190901, end: 20190901
  4. BETAHISTINE [Concomitant]
     Active Substance: BETAHISTINE
     Indication: DIZZINESS
     Route: 065
     Dates: start: 20181228, end: 20181228
  5. MAGNESIUM ISOGLYCYRRHIZINATE [Concomitant]
     Active Substance: MAGNESIUM ISOGLYCYRRHIZINATE
     Route: 065
     Dates: start: 20190927, end: 20191004
  6. PLATELETS [Concomitant]
     Active Substance: HUMAN PLATELET, ALLOGENIC
     Route: 065
     Dates: start: 20190929, end: 20191002
  7. POLYSACCHARIDE-IRON COMPLEX [Concomitant]
     Active Substance: FERRIC POLYSACCHARIDE COMPLEX
     Indication: ANAEMIA
     Route: 065
     Dates: start: 20181121
  8. LORATADINE. [Concomitant]
     Active Substance: LORATADINE
     Route: 065
     Dates: start: 20190901, end: 20190901
  9. LORATADINE. [Concomitant]
     Active Substance: LORATADINE
     Route: 065
     Dates: start: 20190926, end: 20190926
  10. GLUTATHIONE REDUCED [Concomitant]
     Route: 065
     Dates: start: 20181226, end: 20181229
  11. FUROSEMIDE. [Concomitant]
     Active Substance: FUROSEMIDE
     Indication: POLYURIA
     Route: 065
     Dates: start: 20181226, end: 20181226
  12. PLATELETS [Concomitant]
     Active Substance: HUMAN PLATELET, ALLOGENIC
     Indication: PLATELET COUNT INCREASED
     Route: 065
     Dates: start: 20190928, end: 20190928
  13. RECOMBINANT HUMAN GRANULOCYTE COLONY STIMULATING FACTOR [Concomitant]
     Route: 065
     Dates: start: 20191009, end: 20191009
  14. CIMETIDINE [Concomitant]
     Active Substance: CIMETIDINE
     Route: 065
     Dates: start: 20190901, end: 20190901
  15. DEXAMETHASONE SODIUM PHOSPHATE. [Concomitant]
     Active Substance: DEXAMETHASONE SODIUM PHOSPHATE
     Route: 042
     Dates: start: 20190929, end: 20191002
  16. DEXAMETHASONE SODIUM PHOSPHATE. [Concomitant]
     Active Substance: DEXAMETHASONE SODIUM PHOSPHATE
     Route: 042
     Dates: start: 20191006, end: 20191006
  17. OMEPRAZOLE SODIUM [Concomitant]
     Active Substance: OMEPRAZOLE SODIUM
     Route: 065
     Dates: start: 20190901, end: 20190901
  18. PROMETHAZINE HYDROCHLORIDE. [Concomitant]
     Active Substance: PROMETHAZINE HYDROCHLORIDE
     Route: 065
     Dates: start: 20190926, end: 20190926
  19. PROMETHAZINE HYDROCHLORIDE. [Concomitant]
     Active Substance: PROMETHAZINE HYDROCHLORIDE
     Route: 065
     Dates: start: 20190929, end: 20190930
  20. RECOMBINANT HUMAN INTERLEUKIN-11 [Concomitant]
     Active Substance: OPRELVEKIN
     Indication: PLATELET COUNT INCREASED
     Route: 065
     Dates: start: 20190927, end: 20191010
  21. LORATADINE. [Concomitant]
     Active Substance: LORATADINE
     Dosage: PREVENT ALLERGY
     Route: 065
     Dates: start: 20181226, end: 20181226
  22. DEXAMETHASONE SODIUM PHOSPHATE. [Concomitant]
     Active Substance: DEXAMETHASONE SODIUM PHOSPHATE
     Route: 042
     Dates: start: 20190926, end: 20190926
  23. OMEPRAZOLE SODIUM [Concomitant]
     Active Substance: OMEPRAZOLE SODIUM
     Dosage: PROTECT GASTRIC MUCOSA
     Route: 065
     Dates: start: 20181226, end: 20181226
  24. GLUTATHIONE REDUCED [Concomitant]
     Dosage: PROTECT LIVER
     Route: 065
     Dates: start: 20190901, end: 20190901
  25. GLUTATHIONE REDUCED [Concomitant]
     Route: 065
     Dates: start: 20190926, end: 20191004
  26. LACTULOSE. [Concomitant]
     Active Substance: LACTULOSE
     Indication: CONSTIPATION
     Route: 065
     Dates: start: 20190929, end: 20190929
  27. CARBOPLATIN. [Suspect]
     Active Substance: CARBOPLATIN
     Indication: OVARIAN CANCER
     Dosage: DOSE: 6 MG/ML.MIN?DATE OF MOST RECENT DOSE PRIOR TO ONSET OF THE EVENT: 20/JAN/2019 (470 MG)?DATE OF
     Route: 042
     Dates: start: 20180921
  28. DEXAMETHASONE ACETATE [Concomitant]
     Active Substance: DEXAMETHASONE ACETATE
     Indication: PLATELET COUNT INCREASED
     Route: 048
     Dates: start: 20181225, end: 20181225
  29. RECOMBINANT HUMAN THROMBOPOIETIN [Concomitant]
     Active Substance: THROMBOPOIETIN
     Indication: PLATELET COUNT INCREASED
     Route: 065
     Dates: start: 20190928, end: 20191010
  30. CIMETIDINE [Concomitant]
     Active Substance: CIMETIDINE
     Dosage: PREVENT ALLERGY
     Route: 065
     Dates: start: 20181226, end: 20181226
  31. CIMETIDINE [Concomitant]
     Active Substance: CIMETIDINE
     Route: 065
     Dates: start: 20190926, end: 20190926
  32. DEXAMETHASONE SODIUM PHOSPHATE. [Concomitant]
     Active Substance: DEXAMETHASONE SODIUM PHOSPHATE
     Route: 042
     Dates: start: 20190926, end: 20190926
  33. DEXAMETHASONE SODIUM PHOSPHATE. [Concomitant]
     Active Substance: DEXAMETHASONE SODIUM PHOSPHATE
     Route: 042
     Dates: start: 20190929, end: 20191001
  34. DEXAMETHASONE SODIUM PHOSPHATE. [Concomitant]
     Active Substance: DEXAMETHASONE SODIUM PHOSPHATE
     Route: 042
     Dates: start: 20191004, end: 20191004
  35. OMEPRAZOLE SODIUM [Concomitant]
     Active Substance: OMEPRAZOLE SODIUM
     Dosage: PROTECT GASTRIC MUCOSA
     Route: 065
     Dates: start: 20190926, end: 20190926
  36. HETASTARCH. [Concomitant]
     Active Substance: HETASTARCH
     Indication: HYPOVOLAEMIA
     Route: 065
     Dates: start: 20190928, end: 20190928
  37. HUMAN-ALBUMIN [Concomitant]
     Indication: HYPOALBUMINAEMIA
     Route: 065
     Dates: start: 20191006, end: 20191006
  38. DEXAMETHASONE SODIUM PHOSPHATE. [Concomitant]
     Active Substance: DEXAMETHASONE SODIUM PHOSPHATE
     Dosage: PREVENT ALLERGY
     Route: 042
     Dates: start: 20181226, end: 20181226
  39. DEXAMETHASONE SODIUM PHOSPHATE. [Concomitant]
     Active Substance: DEXAMETHASONE SODIUM PHOSPHATE
     Route: 042
     Dates: start: 20190928, end: 20190928
  40. IRBESARTAN HYDROCHLOROTHIAZIDE [Concomitant]
     Active Substance: HYDROCHLOROTHIAZIDE\IRBESARTAN
     Route: 065
     Dates: start: 20190221
  41. PROMETHAZINE HYDROCHLORIDE. [Concomitant]
     Active Substance: PROMETHAZINE HYDROCHLORIDE
     Route: 065
     Dates: start: 20190928, end: 20190928
  42. NORMAL SALINE [Concomitant]
     Active Substance: SODIUM CHLORIDE
     Route: 065
     Dates: start: 20190928, end: 20190928
  43. PACLITAXEL. [Suspect]
     Active Substance: PACLITAXEL
     Indication: OVARIAN CANCER
     Dosage: DATE OF MOST RECENT DOSE PRIOR TO ONSET OF THE EVENT: 20/JAN/2019 (250 MG)?DATE OF MOST RECENT DOSE
     Route: 042
     Dates: start: 20180921
  44. LORATADINE. [Concomitant]
     Active Substance: LORATADINE
     Route: 065
     Dates: start: 20190928, end: 20190928
  45. PALONOSETRON. [Concomitant]
     Active Substance: PALONOSETRON HYDROCHLORIDE
     Indication: VOMITING
     Route: 065
     Dates: start: 20181226, end: 20181226
  46. PLATELETS [Concomitant]
     Active Substance: HUMAN PLATELET, ALLOGENIC
     Dosage: 20 UNITS
     Route: 065
     Dates: start: 20191004, end: 20191004
  47. PLATELETS [Concomitant]
     Active Substance: HUMAN PLATELET, ALLOGENIC
     Route: 065
     Dates: start: 20191006, end: 20191006
  48. HUMAN IMMUNOGLOBULIN (IMMUNOGLOBULIN HUMAN NORMAL) [Concomitant]
     Active Substance: HUMAN IMMUNOGLOBULIN G
     Route: 065
     Dates: start: 20191005, end: 20191005

REACTIONS (5)
  - Anaphylactic shock [Recovered/Resolved]
  - Bacteraemia [Recovered/Resolved]
  - Hypertension [Recovered/Resolved]
  - Haematuria [Recovered/Resolved]
  - Infusion related reaction [Recovered/Resolved]

NARRATIVE: CASE EVENT DATE: 20190122
